FAERS Safety Report 14740584 (Version 2)
Quarter: 2018Q2

REPORT INFORMATION
  Report Type: Spontaneous
  Country: US (occurrence: US)
  Receive Date: 20180410
  Receipt Date: 20180418
  Transmission Date: 20180711
  Serious: Yes (Hospitalization)
  Sender: FDA-Public Use
  Company Number: US-ALSI-201800258

PATIENT
  Sex: Female

DRUGS (2)
  1. NITROUS OXIDE. [Suspect]
     Active Substance: NITROUS OXIDE
  2. OXYGEN. [Suspect]
     Active Substance: OXYGEN
     Indication: OCCUPATIONAL EXPOSURE TO PRODUCT
     Route: 050

REACTIONS (3)
  - Thermal burn [Unknown]
  - Accident [Unknown]
  - Occupational exposure to product [Unknown]
